FAERS Safety Report 15481558 (Version 1)
Quarter: 2018Q4

REPORT INFORMATION
  Report Type: Spontaneous
  Country: BE (occurrence: BE)
  Receive Date: 20181010
  Receipt Date: 20181010
  Transmission Date: 20190205
  Serious: Yes (Other)
  Sender: FDA-Public Use
  Company Number: BE-TEVA-2018-BE-962354

PATIENT
  Sex: Female

DRUGS (2)
  1. AMOXICILLINE 500 MG [Suspect]
     Active Substance: AMOXICILLIN
     Route: 048
  2. CLARITHROMYCINE MYLAN 500 MG, COMPRIM? PELLICUL? [Suspect]
     Active Substance: CLARITHROMYCIN
     Route: 048

REACTIONS (1)
  - Malaise [Unknown]
